FAERS Safety Report 6922893-6 (Version None)
Quarter: 2010Q3

REPORT INFORMATION
  Report Type: 
  Country: None (occurrence: None)
  Receive Date: 20100811
  Receipt Date: 20100803
  Transmission Date: 20110219
  Serious: Yes (Hospitalization, Other)
  Sender: FDA-Public Use
  Company Number: 2009-199325-NL

PATIENT
  Age: 31 Year
  Sex: Female
  Weight: 70.3075 kg

DRUGS (1)
  1. NUVARING [Suspect]
     Indication: CONTRACEPTION
     Dates: start: 20080620, end: 20081006

REACTIONS (16)
  - AMENORRHOEA [None]
  - CEREBRAL ARTERY STENOSIS [None]
  - DEEP VEIN THROMBOSIS [None]
  - EXOSTOSIS [None]
  - FIBROCYSTIC BREAST DISEASE [None]
  - HOT FLUSH [None]
  - MENSTRUATION IRREGULAR [None]
  - MIGRAINE [None]
  - NIGHT SWEATS [None]
  - OSTEOARTHRITIS [None]
  - OSTEOPENIA [None]
  - OTITIS MEDIA [None]
  - PHARYNGITIS [None]
  - PREMATURE MENOPAUSE [None]
  - UNEVALUABLE EVENT [None]
  - VAGINAL DISCHARGE [None]
